FAERS Safety Report 8420009-0 (Version None)
Quarter: 2012Q2

REPORT INFORMATION
  Report Type: 
  Country: None (occurrence: None)
  Receive Date: 20120607
  Receipt Date: 20120529
  Transmission Date: 20120825
  Serious: Yes (Death)
  Sender: FDA-Public Use
  Company Number: DE-BAXTER-2012BAX003469

PATIENT
  Sex: Female

DRUGS (1)
  1. EXTRANEAL [Suspect]
     Route: 033

REACTIONS (1)
  - DEATH [None]
